FAERS Safety Report 7955781-7 (Version None)
Quarter: 2011Q4

REPORT INFORMATION
  Report Type: 
  Country: None (occurrence: None)
  Receive Date: 20111205
  Receipt Date: 20111125
  Transmission Date: 20120403
  Serious: Yes (Hospitalization)
  Sender: FDA-Public Use
  Company Number: JP-BRISTOL-MYERS SQUIBB COMPANY-16257305

PATIENT
  Age: 67 Year
  Sex: Female

DRUGS (9)
  1. TACROLIMUS [Concomitant]
  2. METHOTREXATE [Suspect]
  3. ALENDRONATE SODIUM [Concomitant]
     Indication: OSTEOPOROSIS
  4. ONEALFA [Concomitant]
     Indication: OSTEOPOROSIS
  5. ORENCIA [Suspect]
     Indication: RHEUMATOID ARTHRITIS
     Dosage: 4FEB11,18FEB11,15MAR11,12APR11,13MAY11,10JUN11
     Route: 042
     Dates: start: 20110121
  6. SODIUM AUROTHIOMALATE [Concomitant]
  7. VOLTAREN [Concomitant]
     Indication: RHEUMATOID ARTHRITIS
  8. ASPARA [Concomitant]
     Indication: OSTEOPOROSIS
  9. METHYCOBAL [Concomitant]
     Indication: NEUROPATHY PERIPHERAL

REACTIONS (1)
  - FEMORAL NECK FRACTURE [None]
